FAERS Safety Report 4778082-7 (Version None)
Quarter: 2005Q3

REPORT INFORMATION
  Report Type: 
  Country: None (occurrence: None)
  Receive Date: 20050926
  Receipt Date: 20050914
  Transmission Date: 20060218
  Serious: Yes (Other)
  Sender: FDA-Public Use
  Company Number: US-JNJFOC-20050903638

PATIENT
  Age: 36 Year
  Sex: Female
  Weight: 60.78 kg

DRUGS (4)
  1. REMICADE [Suspect]
     Route: 042
  2. REMICADE [Suspect]
     Indication: ANKYLOSING SPONDYLITIS
     Route: 042
  3. METHOTREXATE [Concomitant]
  4. ORAL CONTRACEPTIVE [Concomitant]

REACTIONS (7)
  - ANKYLOSING SPONDYLITIS [None]
  - ANTINUCLEAR ANTIBODY POSITIVE [None]
  - DOUBLE STRANDED DNA ANTIBODY [None]
  - ERYTHEMA MULTIFORME [None]
  - JOINT SWELLING [None]
  - SWELLING [None]
  - TENDON DISORDER [None]
